FAERS Safety Report 20708731 (Version 3)
Quarter: 2022Q3

REPORT INFORMATION
  Report Type: Spontaneous
  Country: US (occurrence: US)
  Receive Date: 20220414
  Receipt Date: 20220715
  Transmission Date: 20221026
  Serious: Yes (Hospitalization, Other)
  Sender: FDA-Public Use
  Company Number: US-drreddys-SPO/USA/22/0148789

PATIENT
  Age: 35 Year
  Sex: Male

DRUGS (12)
  1. PROPOFOL [Suspect]
     Active Substance: PROPOFOL
     Indication: Cholecystectomy
  2. PROPOFOL [Suspect]
     Active Substance: PROPOFOL
     Indication: Induction of anaesthesia
     Dosage: POD 8
  3. PROPOFOL [Suspect]
     Active Substance: PROPOFOL
     Dosage: POD 11
  4. PROPOFOL [Suspect]
     Active Substance: PROPOFOL
     Dosage: POD 9
  5. PROPOFOL [Suspect]
     Active Substance: PROPOFOL
     Dosage: POD 7
  6. PROPOFOL [Suspect]
     Active Substance: PROPOFOL
     Dosage: POD 1
  7. PROPOFOL [Suspect]
     Active Substance: PROPOFOL
     Dosage: POD 10
  8. PROPOFOL [Suspect]
     Active Substance: PROPOFOL
     Dosage: POD 2
  9. PROPOFOL [Suspect]
     Active Substance: PROPOFOL
     Dosage: POD 5
  10. PROPOFOL [Suspect]
     Active Substance: PROPOFOL
     Dosage: POD 6
  11. PROPOFOL [Suspect]
     Active Substance: PROPOFOL
     Dosage: POD 4
  12. PROPOFOL [Suspect]
     Active Substance: PROPOFOL
     Dosage: POD 3

REACTIONS (2)
  - Electrocardiogram abnormal [Recovered/Resolved]
  - Unmasking of previously unidentified disease [Recovered/Resolved]
